FAERS Safety Report 4416104-3 (Version None)
Quarter: 2004Q3

REPORT INFORMATION
  Report Type: 
  Country: None (occurrence: None)
  Receive Date: 20040730
  Receipt Date: 20040722
  Transmission Date: 20050211
  Serious: Yes (Other)
  Sender: FDA-Public Use
  Company Number: 2004224746JP

PATIENT
  Sex: Female

DRUGS (3)
  1. CLINDAMYCIN HCL [Suspect]
     Indication: POSTOPERATIVE INFECTION
     Dosage: IV
     Route: 042
     Dates: start: 20040623, end: 20040625
  2. CEFMETAZON (CEFMETAZOLE SODIUM) [Suspect]
     Dosage: IV
     Route: 042
     Dates: start: 20040623, end: 20040625
  3. DECADRON [Concomitant]

REACTIONS (1)
  - VASCULITIS [None]
